FAERS Safety Report 19213606 (Version 2)
Quarter: 2021Q2

REPORT INFORMATION
  Report Type: Report from Study
  Country: US (occurrence: US)
  Receive Date: 20210505
  Receipt Date: 20210505
  Transmission Date: 20210717
  Serious: Yes (Death)
  Sender: FDA-Public Use
  Company Number: US-ASTRAZENECA-2021A384351

PATIENT
  Age: 32 Year
  Sex: Female
  Weight: 77.5 kg

DRUGS (9)
  1. OLAPARIB. [Suspect]
     Active Substance: OLAPARIB
     Indication: CERVIX CARCINOMA
     Route: 048
  2. OXYCODONE [Concomitant]
     Active Substance: OXYCODONE
     Dosage: 30 MILLIGRAM, PRN
     Route: 048
  3. LACTULOSE. [Concomitant]
     Active Substance: LACTULOSE
     Dosage: 15 MILLILITER, RECTAL LIQUID
     Route: 048
  4. PEMBROLIZUMAB. [Suspect]
     Active Substance: PEMBROLIZUMAB
     Indication: CERVIX CARCINOMA
     Route: 042
     Dates: start: 20210407
  5. LACTULOSE. [Concomitant]
     Active Substance: LACTULOSE
     Route: 048
  6. ONDANSETRON [Concomitant]
     Active Substance: ONDANSETRON
     Dosage: 8 MILLIGRAM, PRN
     Route: 048
  7. FENTANYL. [Concomitant]
     Active Substance: FENTANYL
     Route: 062
  8. FENTANYL. [Concomitant]
     Active Substance: FENTANYL
     Route: 062
  9. HEPARIN [Concomitant]
     Active Substance: HEPARIN SODIUM
     Dosage: FLUSH
     Route: 065

REACTIONS (2)
  - Cerebrovascular accident [Fatal]
  - Thrombocytopenia [Fatal]

NARRATIVE: CASE EVENT DATE: 20210423
